FAERS Safety Report 8902253 (Version 1)
Quarter: 2012Q4

REPORT INFORMATION
  Report Type: 
  Country: DE (occurrence: DE)
  Receive Date: 20121112
  Receipt Date: 20121112
  Transmission Date: 20130627
  Serious: Yes (Hospitalization, Other)
  Sender: FDA-Public Use
  Company Number: PHHY2012DE075107

PATIENT
  Sex: Male

DRUGS (5)
  1. GILENYA [Suspect]
     Indication: MULTIPLE SCLEROSIS
     Dosage: 0.5 mg, QD
     Route: 048
     Dates: start: 20120724, end: 20120823
  2. INSULIN GLARGINE [Concomitant]
     Indication: TYPE 1 DIABETES MELLITUS
     Dosage: 25 E
     Route: 058
  3. METOPROLOL SUCCINATE [Concomitant]
     Indication: HYPERTENSION
     Dosage: 4.5 mg, UNK
     Route: 048
     Dates: start: 201206
  4. PANTOPRAZOL [Concomitant]
     Dosage: 20 mg, QD
     Route: 048
     Dates: start: 20120817, end: 20120821
  5. PREDNISOLON [Concomitant]
     Dosage: 1000 mg, QD
     Route: 042

REACTIONS (3)
  - Macular oedema [Recovered/Resolved]
  - Visual impairment [Recovered/Resolved]
  - Optic neuritis [Unknown]
